FAERS Safety Report 9466811 (Version 1)
Quarter: 2013Q3

REPORT INFORMATION
  Report Type: Spontaneous
  Country: US (occurrence: US)
  Receive Date: 20130820
  Receipt Date: 20130820
  Transmission Date: 20140515
  Serious: Yes (Hospitalization)
  Sender: FDA-Public Use
  Company Number: US-BRISTOL-MYERS SQUIBB COMPANY-19199959

PATIENT
  Sex: 0

DRUGS (1)
  1. KENALOG-40 [Suspect]
     Indication: BACK PAIN
     Dosage: KENALOG-40
     Route: 008

REACTIONS (9)
  - Hypersensitivity [Unknown]
  - Renal failure [Unknown]
  - Balance disorder [Unknown]
  - Vision blurred [Unknown]
  - Dizziness [Unknown]
  - Respiratory distress [Unknown]
  - Pulmonary fibrosis [Unknown]
  - Adrenal insufficiency [Unknown]
  - Meningitis [Unknown]
